FAERS Safety Report 15046496 (Version 3)
Quarter: 2019Q1

REPORT INFORMATION
  Report Type: Spontaneous
  Country: US (occurrence: US)
  Receive Date: 20180621
  Receipt Date: 20190213
  Transmission Date: 20190417
  Serious: No
  Sender: FDA-Public Use
  Company Number: US-ACTELION-A-NJ2018-174030

PATIENT
  Age: 57 Year
  Sex: Female

DRUGS (12)
  1. NAPROXEN. [Concomitant]
     Active Substance: NAPROXEN
     Indication: BACK PAIN
     Dosage: 500 MG, BID
  2. LAMOTRIGINE. [Concomitant]
     Active Substance: LAMOTRIGINE
     Dosage: 100 MG, QD
  3. TEMAZEPAM. [Concomitant]
     Active Substance: TEMAZEPAM
     Dosage: 30 MG, PRN
  4. NAPROXEN. [Concomitant]
     Active Substance: NAPROXEN
     Indication: HEADACHE
  5. GABAPENTIN. [Concomitant]
     Active Substance: GABAPENTIN
     Dosage: 400 MG, TID
  6. ADCIRCA [Concomitant]
     Active Substance: TADALAFIL
     Dosage: 40 MG, QD
     Dates: start: 201806
  7. TIZANIDINE. [Concomitant]
     Active Substance: TIZANIDINE
     Dosage: 40 MG, QD
  8. BUPROPION HCL ER [Concomitant]
     Active Substance: BUPROPION HYDROCHLORIDE
     Dosage: 100 MG, QD
  9. GLYCOPYRROLATE. [Concomitant]
     Active Substance: GLYCOPYRROLATE
  10. OPSUMIT [Suspect]
     Active Substance: MACITENTAN
     Indication: PULMONARY ARTERIAL HYPERTENSION
     Dosage: 10 MG, QD
     Route: 048
     Dates: start: 20180606
  11. QUETIAPINE. [Concomitant]
     Active Substance: QUETIAPINE
     Dosage: 100 MG, QD
  12. VENTOLIN [Concomitant]
     Active Substance: ALBUTEROL SULFATE
     Dosage: UNK MG, QD

REACTIONS (10)
  - Back pain [Not Recovered/Not Resolved]
  - Nasal congestion [Not Recovered/Not Resolved]
  - Oropharyngeal pain [Not Recovered/Not Resolved]
  - Swelling [Not Recovered/Not Resolved]
  - Peripheral swelling [Unknown]
  - Dizziness [Unknown]
  - Oedema [Not Recovered/Not Resolved]
  - Condition aggravated [Not Recovered/Not Resolved]
  - Dyspnoea exertional [Unknown]
  - Headache [Not Recovered/Not Resolved]

NARRATIVE: CASE EVENT DATE: 201806
